FAERS Safety Report 17289727 (Version 1)
Quarter: 2020Q1

REPORT INFORMATION
  Report Type: Spontaneous
  Country: DE (occurrence: DE)
  Receive Date: 20200120
  Receipt Date: 20200120
  Transmission Date: 20200409
  Serious: Yes (Other)
  Sender: FDA-Public Use
  Company Number: DE-ASTRAZENECA-2020SE06596

PATIENT
  Age: 74 Year
  Sex: Female
  Weight: 56 kg

DRUGS (7)
  1. OLAPARIB. [Suspect]
     Active Substance: OLAPARIB
     Indication: OVARIAN CANCER
     Dosage: 800.0MG UNKNOWN
     Route: 048
     Dates: start: 201607, end: 201911
  2. GEMCITABINE. [Concomitant]
     Active Substance: GEMCITABINE
  3. CARBOPLATIN. [Concomitant]
     Active Substance: CARBOPLATIN
  4. BISPHOSPHONATES [Concomitant]
     Active Substance: UNSPECIFIED INGREDIENT
  5. ALENDRONATE [Concomitant]
     Active Substance: ALENDRONATE SODIUM
  6. ZOLEDRONATE [Concomitant]
     Active Substance: ZOLEDRONIC ACID
  7. INNOHEP [Concomitant]
     Active Substance: TINZAPARIN SODIUM
     Indication: COAGULOPATHY

REACTIONS (9)
  - Spinal disorder [Unknown]
  - Spinal fracture [Unknown]
  - Platelet count decreased [Recovered/Resolved]
  - Haemoglobin decreased [Unknown]
  - Pallor [Unknown]
  - Acquired gene mutation [Unknown]
  - Malignant neoplasm progression [Unknown]
  - Myelodysplastic syndrome [Unknown]
  - Acute myeloid leukaemia [Unknown]

NARRATIVE: CASE EVENT DATE: 201707
